FAERS Safety Report 12240754 (Version 2)
Quarter: 2016Q2

REPORT INFORMATION
  Report Type: Spontaneous
  Country: BR (occurrence: BR)
  Receive Date: 20160406
  Receipt Date: 20160419
  Transmission Date: 20160815
  Serious: Yes (Life-Threatening, Hospitalization, Disabling, Other)
  Sender: FDA-Public Use
  Company Number: BR-ASTRAZENECA-2016SE34970

PATIENT
  Age: 53 Year
  Sex: Male

DRUGS (4)
  1. ATACAND HCT [Suspect]
     Active Substance: CANDESARTAN CILEXETIL\HYDROCHLOROTHIAZIDE
     Indication: BLOOD PRESSURE ABNORMAL
     Dosage: 16/12.5 MG, TWO TABLETS
     Route: 048
     Dates: start: 2007
  2. ATACAND HCT [Suspect]
     Active Substance: CANDESARTAN CILEXETIL\HYDROCHLOROTHIAZIDE
     Indication: HYPERTENSION
     Dosage: 16/12.5 MG, TWO TABLETS
     Route: 048
     Dates: start: 2007
  3. ATACAND HCT [Suspect]
     Active Substance: CANDESARTAN CILEXETIL\HYDROCHLOROTHIAZIDE
     Indication: BLOOD PRESSURE ABNORMAL
     Dosage: 8/12.5 MG, TWO TABLETS
     Route: 048
     Dates: start: 2007, end: 2007
  4. ATACAND HCT [Suspect]
     Active Substance: CANDESARTAN CILEXETIL\HYDROCHLOROTHIAZIDE
     Indication: HYPERTENSION
     Dosage: 8/12.5 MG, TWO TABLETS
     Route: 048
     Dates: start: 2007, end: 2007

REACTIONS (10)
  - Fall [Recovered/Resolved]
  - Drug dispensing error [Recovered/Resolved]
  - Cervical vertebral fracture [Recovered/Resolved with Sequelae]
  - Syncope [Recovered/Resolved]
  - Sensory loss [Not Recovered/Not Resolved]
  - Joint range of motion decreased [Not Recovered/Not Resolved]
  - Incorrect dose administered [Unknown]
  - Paraesthesia [Recovered/Resolved]
  - Back injury [Unknown]
  - Seizure [Recovered/Resolved]

NARRATIVE: CASE EVENT DATE: 2007
